FAERS Safety Report 8261520-5 (Version None)
Quarter: 2012Q2

REPORT INFORMATION
  Report Type: 
  Country: None (occurrence: None)
  Receive Date: 20120405
  Receipt Date: 20120330
  Transmission Date: 20120825
  Serious: Yes (Life-Threatening)
  Sender: FDA-Public Use
  Company Number: FR-NOVOPROD-341001

PATIENT
  Age: 46 Year
  Sex: Male

DRUGS (2)
  1. NOVOSEVEN [Suspect]
     Indication: SHOCK HAEMORRHAGIC
     Dosage: UNK
     Route: 042
  2. OMEPRAZOLE [Concomitant]

REACTIONS (1)
  - DEEP VEIN THROMBOSIS [None]
